FAERS Safety Report 8132340-7 (Version None)
Quarter: 2012Q1

REPORT INFORMATION
  Report Type: 
  Country: None (occurrence: None)
  Receive Date: 20120213
  Receipt Date: 20120202
  Transmission Date: 20120608
  Serious: Yes (Other)
  Sender: FDA-Public Use
  Company Number: CA-JNJFOC-20120201895

PATIENT
  Sex: Female
  Weight: 78 kg

DRUGS (2)
  1. REMICADE [Suspect]
     Indication: RHEUMATOID ARTHRITIS
     Route: 042
     Dates: start: 20050101
  2. REMICADE [Suspect]
     Dosage: 57TH INFUSION ON 29-DEC (YEAR UNSPECIFIED)
     Route: 042

REACTIONS (6)
  - UPPER RESPIRATORY TRACT INFECTION [None]
  - PLEURAL EFFUSION [None]
  - INSOMNIA [None]
  - JOINT ARTHROPLASTY [None]
  - PAIN [None]
  - DYSPNOEA [None]
